FAERS Safety Report 8293701-9 (Version None)
Quarter: 2012Q2

REPORT INFORMATION
  Report Type: 
  Country: None (occurrence: None)
  Receive Date: 20120418
  Receipt Date: 20120411
  Transmission Date: 20120825
  Serious: Yes (Other)
  Sender: FDA-Public Use
  Company Number: US-AMGEN-USASP2011061992

PATIENT

DRUGS (1)
  1. ARANESP [Suspect]
     Indication: TRANSPLANT
     Dosage: UNK
     Dates: start: 20110901

REACTIONS (5)
  - DYSPNOEA [None]
  - ADVERSE DRUG REACTION [None]
  - ANAEMIA [None]
  - DIZZINESS [None]
  - FATIGUE [None]
